FAERS Safety Report 20482525 (Version 1)
Quarter: 2022Q1

REPORT INFORMATION
  Report Type: Spontaneous
  Country: US (occurrence: US)
  Receive Date: 20220217
  Receipt Date: 20220217
  Transmission Date: 20220423
  Serious: Yes (Hospitalization)
  Sender: FDA-Public Use
  Company Number: US-BAUSCH-BL-2022-004026

PATIENT
  Age: 50 Year
  Sex: Female

DRUGS (4)
  1. OPCON-A [Suspect]
     Active Substance: NAPHAZOLINE HYDROCHLORIDE\PHENIRAMINE MALEATE
     Indication: Eye allergy
     Route: 047
     Dates: end: 20220208
  2. OPCON-A [Suspect]
     Active Substance: NAPHAZOLINE HYDROCHLORIDE\PHENIRAMINE MALEATE
     Route: 047
  3. METFORMIN [Concomitant]
     Active Substance: METFORMIN HYDROCHLORIDE
     Indication: Product used for unknown indication
     Route: 058
  4. TRULICITY [Concomitant]
     Active Substance: DULAGLUTIDE
     Indication: Type 2 diabetes mellitus
     Route: 058

REACTIONS (8)
  - Hysterectomy [Unknown]
  - Benign ovarian tumour [Unknown]
  - Vision blurred [Unknown]
  - Diarrhoea [Unknown]
  - Frequent bowel movements [Unknown]
  - Spinal cord injury [Recovering/Resolving]
  - Paraplegia [Unknown]
  - Expired product administered [Unknown]

NARRATIVE: CASE EVENT DATE: 20170601
